FAERS Safety Report 6012667-5 (Version None)
Quarter: 2008Q4

REPORT INFORMATION
  Report Type: 
  Country: None (occurrence: None)
  Receive Date: 20081217
  Receipt Date: 20081208
  Transmission Date: 20090506
  Serious: Yes (Life-Threatening, Other)
  Sender: FDA-Public Use
  Company Number: THQ2008A02619

PATIENT
  Age: 77 Year
  Sex: Female

DRUGS (3)
  1. ACTOS [Suspect]
     Indication: TYPE 2 DIABETES MELLITUS
     Dosage: 30 MG, PER ORAL
     Route: 048
     Dates: start: 20080901, end: 20080930
  2. ACE INHIBITOR NOS [Concomitant]
  3. ACE-II INHIBITORS(ACE INHIBITOR NOS) [Concomitant]

REACTIONS (3)
  - HEADACHE [None]
  - HYPERTENSION [None]
  - WEIGHT INCREASED [None]
